FAERS Safety Report 18468386 (Version 1)
Quarter: 2020Q4

REPORT INFORMATION
  Report Type: Spontaneous
  Country: US (occurrence: US)
  Receive Date: 20201104
  Receipt Date: 20201104
  Transmission Date: 20210114
  Serious: Yes (Hospitalization)
  Sender: FDA-Public Use
  Company Number: None

PATIENT
  Age: 35 Year
  Sex: Female

DRUGS (1)
  1. TRAZODONE (TRAZODONE HCL 100MG TAB) [Suspect]
     Active Substance: TRAZODONE HYDROCHLORIDE
     Indication: ADJUSTMENT DISORDER WITH DEPRESSED MOOD

REACTIONS (5)
  - Sedation [None]
  - Suicide attempt [None]
  - Confusional state [None]
  - Overdose [None]
  - Alcohol use [None]

NARRATIVE: CASE EVENT DATE: 20200825
